FAERS Safety Report 7749928-5 (Version None)
Quarter: 2011Q3

REPORT INFORMATION
  Report Type: 
  Country: None (occurrence: None)
  Receive Date: 20110914
  Receipt Date: 20110903
  Transmission Date: 20111222
  Serious: Yes (Other)
  Sender: FDA-Public Use
  Company Number: TR-US-EMD SERONO, INC.-7079148

PATIENT
  Sex: Female

DRUGS (3)
  1. MINOSET [Concomitant]
     Route: 058
     Dates: start: 20090803, end: 20110824
  2. REBIF [Suspect]
     Route: 058
  3. REBIF [Suspect]
     Indication: MULTIPLE SCLEROSIS
     Route: 058
     Dates: start: 20090803, end: 20110824

REACTIONS (2)
  - ABORTION SPONTANEOUS [None]
  - MATERNAL EXPOSURE DURING PREGNANCY [None]
